FAERS Safety Report 8992227 (Version 4)
Quarter: 2013Q2

REPORT INFORMATION
  Report Type: Spontaneous
  Country: US (occurrence: US)
  Receive Date: 20121231
  Receipt Date: 20130603
  Transmission Date: 20140414
  Serious: Yes (Death, Hospitalization, Disabling, Other)
  Sender: FDA-Public Use
  Company Number: US-009507513-1203USA03648

PATIENT
  Sex: Female

DRUGS (9)
  1. FOSAMAX [Suspect]
     Indication: OSTEOPOROSIS
     Dosage: 70 MG, QW
     Route: 048
     Dates: start: 200507, end: 200907
  2. LANTUS [Concomitant]
     Indication: TYPE 2 DIABETES MELLITUS
     Dosage: 60 UNITS Q AM
     Route: 058
     Dates: start: 1990, end: 201005
  3. NOVOLOG [Concomitant]
     Indication: TYPE 2 DIABETES MELLITUS
     Dosage: UNK
     Dates: start: 1990, end: 201005
  4. LISINOPRIL [Concomitant]
     Indication: HYPERTENSION
     Dosage: 40 MG, QD
     Dates: start: 1998, end: 2009
  5. NORVASC [Concomitant]
     Indication: HYPERTENSION
     Dosage: UNK
     Dates: start: 2009, end: 201005
  6. K-DUR [Concomitant]
     Indication: BLOOD POTASSIUM DECREASED
     Dosage: 20 MEQ, QD
     Dates: start: 2002, end: 2009
  7. SYNTHROID [Concomitant]
     Indication: THYROID DISORDER
     Dosage: 0.3 MG, QD
     Dates: start: 1978, end: 201005
  8. LOVASTATIN [Concomitant]
     Indication: BLOOD CHOLESTEROL INCREASED
     Dosage: 40 MG, HS
     Dates: start: 1996, end: 201005
  9. CORTICOSTEROIDS (UNSPECIFIED) [Concomitant]
     Dosage: UNK
     Dates: start: 2005, end: 2009

REACTIONS (71)
  - Femur fracture [Unknown]
  - Open reduction of fracture [Unknown]
  - Fracture debridement [Unknown]
  - Femur fracture [Unknown]
  - Intramedullary rod insertion [Unknown]
  - Removal of internal fixation [Unknown]
  - Femur fracture [Unknown]
  - Removal of internal fixation [Unknown]
  - Intramedullary rod insertion [Unknown]
  - Femur fracture [Unknown]
  - Stent placement [Unknown]
  - Pulmonary embolism [Unknown]
  - Pulmonary embolism [Unknown]
  - Humerus fracture [Unknown]
  - Pulmonary embolism [Unknown]
  - Osteoporosis [Unknown]
  - Stress fracture [Unknown]
  - Bone density decreased [Unknown]
  - Death [Fatal]
  - Arthrotomy [Unknown]
  - Anaemia [Not Recovered/Not Resolved]
  - Fall [Unknown]
  - Fall [Unknown]
  - Mental status changes [Recovered/Resolved]
  - Hypoxia [Recovered/Resolved]
  - Escherichia urinary tract infection [Unknown]
  - Hypotension [Recovered/Resolved]
  - Dehydration [Recovering/Resolving]
  - Troponin increased [Unknown]
  - Respiratory failure [Unknown]
  - Treatment failure [Unknown]
  - Deep vein thrombosis [Unknown]
  - Deep vein thrombosis [Unknown]
  - Anxiety [Not Recovered/Not Resolved]
  - Deep vein thrombosis [Unknown]
  - Mental impairment [Not Recovered/Not Resolved]
  - Depression [Not Recovered/Not Resolved]
  - Fall [Unknown]
  - Diverticulum [Unknown]
  - Knee deformity [Unknown]
  - Thyroid disorder [Unknown]
  - Osteoarthritis [Unknown]
  - Adverse event [Unknown]
  - Urinary tract infection [Unknown]
  - Carotid artery disease [Unknown]
  - Asthma [Unknown]
  - Thrombosis [Unknown]
  - Amnesia [Unknown]
  - Adverse event [Unknown]
  - Vitamin D decreased [Unknown]
  - Osteoarthritis [Unknown]
  - Bronchial hyperreactivity [Unknown]
  - Cardiovascular deconditioning [Unknown]
  - Device breakage [Unknown]
  - Sleep apnoea syndrome [Unknown]
  - Clostridium difficile colitis [Unknown]
  - Hypothyroidism [Unknown]
  - Diabetic neuropathy [Unknown]
  - Transient ischaemic attack [Unknown]
  - Cerebral small vessel ischaemic disease [Not Recovered/Not Resolved]
  - Lacunar infarction [Unknown]
  - Chronic obstructive pulmonary disease [Not Recovered/Not Resolved]
  - International normalised ratio increased [Unknown]
  - Pneumonia staphylococcal [Unknown]
  - Atelectasis [Unknown]
  - Pneumonia [Unknown]
  - Fall [Unknown]
  - Blood calcium decreased [Unknown]
  - Constipation [Unknown]
  - Dysphagia [Unknown]
  - Back pain [Unknown]
